FAERS Safety Report 6101939-1 (Version None)
Quarter: 2009Q1

REPORT INFORMATION
  Report Type: 
  Country: None (occurrence: None)
  Receive Date: 20090303
  Receipt Date: 20090303
  Transmission Date: 20090719
  Serious: Yes (Other)
  Sender: FDA-Public Use
  Company Number: None

PATIENT
  Age: 71 Year
  Sex: Female
  Weight: 93.441 kg

DRUGS (1)
  1. PROPRANOLOL [Suspect]
     Indication: FAMILIAL TREMOR
     Dosage: HALF OF A 20 MG BLUE PILL TWICE IN 30 DAYS PO
     Route: 048
     Dates: start: 20090123, end: 20090228

REACTIONS (6)
  - DIZZINESS [None]
  - DRUG HYPERSENSITIVITY [None]
  - FEELING HOT [None]
  - HYPOAESTHESIA ORAL [None]
  - PARAESTHESIA [None]
  - PHARYNGEAL HYPOAESTHESIA [None]
